FAERS Safety Report 23743805 (Version 6)
Quarter: 2025Q3

REPORT INFORMATION
  Report Type: Report from Study
  Country: US (occurrence: US)
  Receive Date: 20240415
  Receipt Date: 20250807
  Transmission Date: 20251021
  Serious: Yes (Hospitalization, Other)
  Sender: TAKEDA
  Company Number: US-TAKEDA-2023TUS079624

PATIENT
  Sex: Female

DRUGS (17)
  1. PONATINIB [Suspect]
     Active Substance: PONATINIB
     Indication: Acute lymphocytic leukaemia
     Dosage: 30 MILLIGRAM, QD
  2. PONATINIB [Suspect]
     Active Substance: PONATINIB
     Dosage: 30 MILLIGRAM, QD
  3. PONATINIB [Suspect]
     Active Substance: PONATINIB
     Dosage: 30 MILLIGRAM, QD
  4. PONATINIB [Suspect]
     Active Substance: PONATINIB
     Dosage: 15 MILLIGRAM, QD
  5. PONATINIB [Suspect]
     Active Substance: PONATINIB
     Dosage: 15 MILLIGRAM, QD
  6. PONATINIB [Suspect]
     Active Substance: PONATINIB
     Dosage: 15 MILLIGRAM, QD
  7. PONATINIB [Suspect]
     Active Substance: PONATINIB
     Dosage: 15 MILLIGRAM, QD
  8. CYTARABINE [Concomitant]
     Active Substance: CYTARABINE
  9. DEXAMETHASONE [Concomitant]
     Active Substance: DEXAMETHASONE
  10. KEPPRA [Concomitant]
     Active Substance: LEVETIRACETAM
  11. BUSPIRONE HCL [Concomitant]
     Active Substance: BUSPIRONE HYDROCHLORIDE
  12. LEXAPRO [Concomitant]
     Active Substance: ESCITALOPRAM OXALATE
  13. BLINCYTO [Concomitant]
     Active Substance: BLINATUMOMAB
  14. METHOTREXATE [Concomitant]
     Active Substance: METHOTREXATE
  15. ASPIRIN [Concomitant]
     Active Substance: ASPIRIN
  16. COLACE [Concomitant]
     Active Substance: DOCUSATE SODIUM
  17. ACYCLOVIR [Concomitant]
     Active Substance: ACYCLOVIR

REACTIONS (10)
  - Gastrointestinal infection [Unknown]
  - Vomiting [Unknown]
  - Chest pain [Unknown]
  - Pneumonia [Unknown]
  - Memory impairment [Unknown]
  - Product dose omission issue [Unknown]
  - Off label use [Unknown]
  - Uterine leiomyoma [Unknown]
  - Stomatitis [Recovered/Resolved]
  - Constipation [Recovered/Resolved]
